FAERS Safety Report 8485520-5 (Version None)
Quarter: 2012Q2

REPORT INFORMATION
  Report Type: 
  Country: None (occurrence: None)
  Receive Date: 20120627
  Receipt Date: 20120627
  Transmission Date: 20120825
  Serious: Yes (Other)
  Sender: FDA-Public Use
  Company Number: None

PATIENT
  Sex: Female

DRUGS (1)
  1. CYMBALTA [Suspect]
     Indication: DEPRESSION
     Dosage: 100 MG ONCE A DAY PO
     Route: 048

REACTIONS (16)
  - PANIC ATTACK [None]
  - DEPRESSION [None]
  - SOMNOLENCE [None]
  - INSOMNIA [None]
  - DYSPEPSIA [None]
  - WITHDRAWAL SYNDROME [None]
  - RESTLESSNESS [None]
  - VISUAL IMPAIRMENT [None]
  - HEADACHE [None]
  - ANXIETY [None]
  - CONDITION AGGRAVATED [None]
  - MEMORY IMPAIRMENT [None]
  - NAUSEA [None]
  - BACK PAIN [None]
  - FAECAL INCONTINENCE [None]
  - DRUG ABUSER [None]
